FAERS Safety Report 23749739 (Version 2)
Quarter: 2024Q2

REPORT INFORMATION
  Report Type: Spontaneous
  Country: JP (occurrence: JP)
  Receive Date: 20240416
  Receipt Date: 20240515
  Transmission Date: 20240715
  Serious: Yes (Death, Hospitalization, Other)
  Sender: FDA-Public Use
  Company Number: JP-MSD-M2024-12855

PATIENT
  Age: 8 Decade
  Sex: Male

DRUGS (1)
  1. KEYTRUDA [Suspect]
     Active Substance: PEMBROLIZUMAB
     Indication: Keratinising squamous cell carcinoma of nasopharynx
     Dosage: 200 MILLIGRAM, Q3W
     Route: 041

REACTIONS (2)
  - Malignant neoplasm progression [Fatal]
  - Myelitis transverse [Unknown]
